FAERS Safety Report 9721443 (Version 2)
Quarter: 2013Q4

REPORT INFORMATION
  Report Type: Spontaneous
  Country: AR (occurrence: AR)
  Receive Date: 20131129
  Receipt Date: 20131129
  Transmission Date: 20140711
  Serious: Yes (Hospitalization)
  Sender: FDA-Public Use
  Company Number: AR-ASTRAZENECA-2013SE85753

PATIENT
  Age: 45 Year
  Sex: Male

DRUGS (1)
  1. BRILINTA [Suspect]
     Indication: ANTIPLATELET THERAPY
     Route: 048

REACTIONS (2)
  - Acute coronary syndrome [Unknown]
  - Dyspnoea [Recovered/Resolved]
